FAERS Safety Report 4660337-8 (Version None)
Quarter: 2005Q2

REPORT INFORMATION
  Report Type: 
  Country: None (occurrence: None)
  Receive Date: 20050427
  Receipt Date: 20050317
  Transmission Date: 20051028
  Serious: No
  Sender: FDA-Public Use
  Company Number: 213244

PATIENT
  Age: 29 Year
  Sex: Male

DRUGS (2)
  1. XOLAIR [Suspect]
     Indication: ASTHMA
  2. PREDNISONE [Suspect]
     Indication: RASH

REACTIONS (1)
  - RASH [None]
